FAERS Safety Report 19298287 (Version 1)
Quarter: 2021Q2

REPORT INFORMATION
  Report Type: Spontaneous
  Country: IT (occurrence: IT)
  Receive Date: 20210525
  Receipt Date: 20210525
  Transmission Date: 20210717
  Serious: Yes (Other)
  Sender: FDA-Public Use
  Company Number: IT-CELLTRION INC.-2021IT006957

PATIENT

DRUGS (1)
  1. INFLIXIMAB (UNKNOWN) [Suspect]
     Active Substance: INFLIXIMAB
     Indication: COLITIS ULCERATIVE
     Dosage: 5 MG/KG (2 AND 6 WEEKS AFTER THE FIRST INFUSION, THEN EVERY 8 WEEKS)
     Route: 042

REACTIONS (3)
  - Loss of therapeutic response [Unknown]
  - Colectomy [Unknown]
  - Colitis ulcerative [Unknown]
